FAERS Safety Report 20961731 (Version 1)
Quarter: 2022Q2

REPORT INFORMATION
  Report Type: Spontaneous
  Country: AU (occurrence: AU)
  Receive Date: 20220615
  Receipt Date: 20220615
  Transmission Date: 20220721
  Serious: Yes (Death, Other)
  Sender: FDA-Public Use
  Company Number: AU-drreddys-LIT/AUS/22/0151108

PATIENT
  Age: 38 Year
  Sex: Male

DRUGS (6)
  1. QUETIAPINE [Suspect]
     Active Substance: QUETIAPINE
     Indication: Product used for unknown indication
  2. BUPRENORPHINE [Suspect]
     Active Substance: BUPRENORPHINE
     Indication: Product used for unknown indication
     Dosage: 4-8 MG INITIALLY, 4-8 MG AFTER 1.5 H, 4-8 MG PRN FOR BREAKTHROUGH
     Route: 060
  3. BUPRENORPHINE [Suspect]
     Active Substance: BUPRENORPHINE
     Dosage: BUPRENORPHINE?4 MG INITIALLY, THEN 8 MG (?2)
     Route: 060
  4. BUPRENORPHINE [Suspect]
     Active Substance: BUPRENORPHINE
     Dosage: BUPRENORPHINE?4 MG INITIALLY, THEN 8 MG (?2)
     Route: 060
  5. DIAZEPAM [Suspect]
     Active Substance: DIAZEPAM
     Indication: Product used for unknown indication
  6. MIRTAZAPINE [Suspect]
     Active Substance: MIRTAZAPINE
     Indication: Product used for unknown indication

REACTIONS (3)
  - Respiratory depression [Fatal]
  - Miosis [Unknown]
  - Somnolence [Unknown]
